FAERS Safety Report 16137506 (Version 1)
Quarter: 2019Q2

REPORT INFORMATION
  Report Type: Spontaneous
  Country: FR (occurrence: FR)
  Receive Date: 20190401
  Receipt Date: 20190401
  Transmission Date: 20190711
  Serious: Yes (Hospitalization)
  Sender: FDA-Public Use
  Company Number: FR-ACCORD-116873

PATIENT
  Age: 21 Year
  Sex: Male
  Weight: 57 kg

DRUGS (4)
  1. FINASTERIDE. [Concomitant]
     Active Substance: FINASTERIDE
  2. METHOTREXATE. [Suspect]
     Active Substance: METHOTREXATE
     Indication: ARTHRALGIA
     Route: 048
     Dates: start: 20180313, end: 20180418
  3. FOLIC ACID. [Concomitant]
     Active Substance: FOLIC ACID
  4. CORTANCYL [Concomitant]
     Active Substance: PREDNISONE

REACTIONS (1)
  - Ischaemic stroke [Recovering/Resolving]

NARRATIVE: CASE EVENT DATE: 20180418
